FAERS Safety Report 15148499 (Version 1)
Quarter: 2018Q3

REPORT INFORMATION
  Report Type: Spontaneous
  Country: JP (occurrence: JP)
  Receive Date: 20180716
  Receipt Date: 20180716
  Transmission Date: 20181010
  Serious: Yes (Other)
  Sender: FDA-Public Use
  Company Number: JP-CELGENEUS-JPN-20180702336

PATIENT
  Sex: Male
  Weight: 61 kg

DRUGS (2)
  1. OTEZLA [Suspect]
     Active Substance: APREMILAST
     Indication: PSORIASIS
     Route: 048
  2. HIRUDOID [Concomitant]
     Active Substance: GLYCOSAMINOGLYCANS
     Indication: PSORIASIS
     Route: 065

REACTIONS (9)
  - Visual acuity reduced [Unknown]
  - Rhinorrhoea [Unknown]
  - Dizziness [Unknown]
  - Increased viscosity of bronchial secretion [Unknown]
  - Blood pressure decreased [Unknown]
  - Saliva altered [Unknown]
  - Decreased appetite [Unknown]
  - Malaise [Unknown]
  - Diarrhoea [Unknown]
